FAERS Safety Report 14615896 (Version 2)
Quarter: 2018Q1

REPORT INFORMATION
  Report Type: Report from Study
  Country: CN (occurrence: CN)
  Receive Date: 20180309
  Receipt Date: 20180328
  Transmission Date: 20180509
  Serious: Yes (Hospitalization)
  Sender: FDA-Public Use
  Company Number: CN-ROCHE-1892671

PATIENT
  Age: 61 Year
  Sex: Female
  Weight: 55 kg

DRUGS (36)
  1. DEXAMETHASONE ACETATE [Concomitant]
     Active Substance: DEXAMETHASONE ACETATE
     Dosage: PRECAUTIONARY ALLERGY
     Route: 065
     Dates: start: 20170204, end: 20170204
  2. AMBROXOL HYDROCHLORIDE [Concomitant]
     Active Substance: AMBROXOL HYDROCHLORIDE
     Dosage: PROMOTE RESPIRATION
     Route: 065
     Dates: start: 20170210, end: 20170213
  3. PARACETAMOL [Concomitant]
     Active Substance: ACETAMINOPHEN
     Dosage: RELIEVE PAIN
     Route: 065
     Dates: start: 20170211, end: 20170213
  4. FLURBIPROFEN AXETIL [Concomitant]
     Active Substance: FLURBIPROFEN AXETIL
     Dosage: RELIEVE PAIN
     Route: 065
     Dates: start: 20170216, end: 20170216
  5. TRASTUZUMAB. [Suspect]
     Active Substance: TRASTUZUMAB
     Dosage: MAINTENANCE DOSE. DATE OF MOST RECENT DOSE (340 MG) OF TRASTUZUMAB PRIOR TO AE ONSET: 13/JAN/2017
     Route: 042
  6. FAMOTIDINE. [Concomitant]
     Active Substance: FAMOTIDINE
     Dosage: PROTECT STOMACH
     Route: 065
     Dates: start: 20170204, end: 20170204
  7. DEXAMETHASONE SODIUM PHOSPHATE. [Concomitant]
     Active Substance: DEXAMETHASONE SODIUM PHOSPHATE
     Route: 065
     Dates: start: 20170113, end: 20170113
  8. DEOXYRIBONUCLEIC ACID SODIUM [Concomitant]
     Dosage: PROTECT LIVER
     Route: 065
     Dates: start: 20170210, end: 20170213
  9. VITAMIN B6 [Concomitant]
     Active Substance: PYRIDOXINE HYDROCHLORIDE
     Dosage: PREVENTION AND TREATMENT OF VITAMIN B6?DEFICIENCY
     Route: 065
     Dates: start: 20170216, end: 20170216
  10. GLUCOSE [Concomitant]
     Active Substance: DEXTROSE
     Dosage: MAINTAIN ELECTROLYTE BALANCE
     Route: 065
     Dates: start: 20170210, end: 20170213
  11. PLACEBO [Suspect]
     Active Substance: UNSPECIFIED INGREDIENT
     Dosage: DATE OF MOST RECENT DOSE OF PERTUZUMAB PRIOR TO AE ONSET: 13/JAN/2017
     Route: 042
  12. DEXAMETHASONE ACETATE [Concomitant]
     Active Substance: DEXAMETHASONE ACETATE
     Route: 065
     Dates: start: 20170113, end: 20170113
  13. PALONOSETRON. [Concomitant]
     Active Substance: PALONOSETRON HYDROCHLORIDE
     Indication: NAUSEA
     Route: 065
     Dates: start: 20170113, end: 20170113
  14. PANXTORA (UNK INGREDIENTS) [Concomitant]
     Dosage: PROTECT STOMACH
     Route: 065
     Dates: start: 20170210, end: 20170213
  15. GLUCOSE [Concomitant]
     Active Substance: DEXTROSE
     Dosage: MAINTAIN ELECTROLYTE BALANCE
     Route: 065
     Dates: start: 20170210, end: 20170210
  16. FAT EMULSION NOS [Concomitant]
     Active Substance: EGG PHOSPHOLIPIDS\SAFFLOWER OIL\SOYBEAN OIL
     Route: 065
     Dates: start: 20170210, end: 20170210
  17. DOCETAXEL. [Suspect]
     Active Substance: DOCETAXEL
     Indication: HER-2 POSITIVE BREAST CANCER
     Dosage: DATE OF MOST RECENT DOSE (120 MG) OF DOCETAXEL PRIOR TO AE ONSET: 13/JAN/2017
     Route: 042
     Dates: start: 20161111
  18. PALONOSETRON. [Concomitant]
     Active Substance: PALONOSETRON HYDROCHLORIDE
     Route: 065
     Dates: start: 20170204, end: 20170204
  19. PANXTORA (UNK INGREDIENTS) [Concomitant]
     Route: 065
     Dates: start: 20170204, end: 20170204
  20. POTASSIUM CHLORIDE. [Concomitant]
     Active Substance: POTASSIUM CHLORIDE
     Dosage: POTASSIUM
     Route: 065
     Dates: start: 20170211, end: 20170213
  21. HUMAN FIBRIN ADHESIVE [Concomitant]
     Route: 065
     Dates: start: 20170209, end: 20170209
  22. ROPIVACAINE MESYLATE [Concomitant]
     Route: 065
     Dates: start: 20170209, end: 20170209
  23. BUDESONIDE. [Concomitant]
     Active Substance: BUDESONIDE
     Indication: BRONCHIECTASIS
     Route: 065
     Dates: start: 20170211, end: 20170213
  24. FAMOTIDINE. [Concomitant]
     Active Substance: FAMOTIDINE
     Route: 065
     Dates: start: 20170113, end: 20170113
  25. DEXAMETHASONE SODIUM PHOSPHATE. [Concomitant]
     Active Substance: DEXAMETHASONE SODIUM PHOSPHATE
     Dosage: PRECAUTIONARY ALLERGY
     Route: 065
     Dates: start: 20170204, end: 20170204
  26. PALONOSETRON. [Concomitant]
     Active Substance: PALONOSETRON HYDROCHLORIDE
     Route: 065
     Dates: start: 20170216, end: 20170216
  27. HEPARIN SODIUM. [Concomitant]
     Active Substance: HEPARIN SODIUM
     Dosage: ANTICOAGULANT
     Route: 065
     Dates: start: 20170210, end: 20170213
  28. PANXTORA (UNK INGREDIENTS) [Concomitant]
     Route: 065
     Dates: start: 20170216, end: 20170216
  29. TRAMADOL HYDROCHLORIDE. [Concomitant]
     Active Substance: TRAMADOL HYDROCHLORIDE
     Dosage: RELIEVE PAIN
     Route: 065
     Dates: start: 20170211, end: 20170213
  30. IPRATROPIUM BROMIDE. [Concomitant]
     Active Substance: IPRATROPIUM BROMIDE
     Indication: BRONCHIECTASIS
     Route: 065
     Dates: start: 20170211, end: 20170213
  31. TRASTUZUMAB. [Suspect]
     Active Substance: TRASTUZUMAB
     Indication: HER-2 POSITIVE BREAST CANCER
     Dosage: LOADING DOSE.
     Route: 042
     Dates: start: 20161111
  32. PANTOPRAZOLE [Concomitant]
     Active Substance: PANTOPRAZOLE
     Route: 065
     Dates: start: 20170113, end: 20170113
  33. DEZOCINE [Concomitant]
     Active Substance: DEZOCINE
     Dosage: RELIEVE PAIN
     Route: 065
     Dates: start: 20170210, end: 20170213
  34. NEUTRAL INSULIN [Concomitant]
     Active Substance: INSULIN PORK\INSULIN PURIFIED PORK
     Dosage: LOWER BLOOD SUGAR
     Route: 065
     Dates: start: 20170210, end: 20170210
  35. DOXOFYLLINE [Concomitant]
     Active Substance: DOXOFYLLINE
     Dosage: MAINTAIN ELECTROLYTE BALANCE
     Route: 065
     Dates: start: 20170210, end: 20170213
  36. PLACEBO [Suspect]
     Active Substance: UNSPECIFIED INGREDIENT
     Indication: HER-2 POSITIVE BREAST CANCER
     Route: 042
     Dates: start: 20161111

REACTIONS (1)
  - Lung cyst [Recovered/Resolved]

NARRATIVE: CASE EVENT DATE: 20170208
